FAERS Safety Report 7717915-9 (Version None)
Quarter: 2011Q3

REPORT INFORMATION
  Report Type: 
  Country: None (occurrence: None)
  Receive Date: 20110830
  Receipt Date: 20110820
  Transmission Date: 20111222
  Serious: Yes (Other)
  Sender: FDA-Public Use
  Company Number: US-JNJFOC-20110700063

PATIENT
  Sex: Female
  Weight: 107.05 kg

DRUGS (1)
  1. TOPAMAX [Suspect]
     Indication: NEUROPATHY PERIPHERAL
     Route: 048
     Dates: start: 20090101, end: 20100101

REACTIONS (2)
  - SPINAL COLUMN STENOSIS [None]
  - ALOPECIA [None]
